FAERS Safety Report 6914355-7 (Version None)
Quarter: 2010Q3

REPORT INFORMATION
  Report Type: 
  Country: None (occurrence: None)
  Receive Date: 20100803
  Receipt Date: 20100730
  Transmission Date: 20110219
  Serious: Yes (Other)
  Sender: FDA-Public Use
  Company Number: SP02965

PATIENT
  Age: 31 Year
  Sex: Female

DRUGS (2)
  1. MOVIPREP [Suspect]
     Indication: COLONOSCOPY
     Dosage: ORAL
     Route: 048
     Dates: start: 20100526, end: 20100526
  2. DROSPIRENONE + ETHINYL ESTRADIOL [Concomitant]

REACTIONS (1)
  - DRUG HYPERSENSITIVITY [None]
